FAERS Safety Report 8121189-7 (Version None)
Quarter: 2012Q1

REPORT INFORMATION
  Report Type: 
  Country: None (occurrence: None)
  Receive Date: 20120208
  Receipt Date: 20120124
  Transmission Date: 20120608
  Serious: Yes (Hospitalization, Other)
  Sender: FDA-Public Use
  Company Number: IT-RANBAXY-2011R1-48525

PATIENT
  Age: 23 Year
  Sex: Male

DRUGS (15)
  1. RISPERIDONE [Suspect]
     Indication: SCHIZOPHRENIA, DISORGANISED TYPE
     Dosage: UNK
     Route: 065
     Dates: start: 20100601
  2. RISPERIDONE [Suspect]
     Dosage: 4 MG/DAY
     Dates: start: 20101001
  3. DIAZEPAM [Concomitant]
     Indication: PRODUCT USED FOR UNKNOWN INDICATION
     Dosage: 18MG/DAY
     Route: 065
     Dates: start: 20100401
  4. RISPERIDONE [Suspect]
     Dosage: 6 MG/DAY
     Dates: start: 20100401
  5. CLONAZEPAM [Concomitant]
     Indication: PRODUCT USED FOR UNKNOWN INDICATION
     Dosage: 4.5MG/DAY
     Route: 065
     Dates: start: 20100401
  6. CLOZAPINE [Interacting]
     Indication: SCHIZOPHRENIA, DISORGANISED TYPE
     Dosage: UPTO 900MG/DAY
     Route: 065
     Dates: start: 20100401, end: 20100601
  7. AMISULPRIDE [Concomitant]
     Indication: PRODUCT USED FOR UNKNOWN INDICATION
     Dosage: UPTO 1200MG/DAY
     Route: 065
     Dates: start: 20100401
  8. AMOXICILLIN [Concomitant]
     Indication: PRODUCT USED FOR UNKNOWN INDICATION
     Dosage: 2G/DAY
     Route: 065
     Dates: start: 20100401
  9. ARIPIPRAZOLE [Concomitant]
     Indication: PRODUCT USED FOR UNKNOWN INDICATION
     Dosage: UPTO 30MG/DAY
     Route: 065
     Dates: start: 20100401
  10. BETAMETHASONE [Concomitant]
     Indication: PRODUCT USED FOR UNKNOWN INDICATION
     Dosage: 1MG/DAY
     Route: 065
     Dates: start: 20100401
  11. HALOPERIDOL [Concomitant]
     Indication: PRODUCT USED FOR UNKNOWN INDICATION
     Dosage: UPTO 10MG/DAY
     Route: 065
     Dates: start: 20100401
  12. CLOZAPINE [Interacting]
     Dosage: 800 MG/DAY
     Route: 065
     Dates: start: 20101001
  13. ACETYLCYSTEINE [Concomitant]
     Indication: PRODUCT USED FOR UNKNOWN INDICATION
     Dosage: 300MG/DAY
     Route: 065
     Dates: start: 20100401
  14. VALPROIC ACID [Suspect]
     Indication: PRODUCT USED FOR UNKNOWN INDICATION
     Dosage: 500 MG/DAY
     Route: 065
     Dates: start: 20101001
  15. DIAZEPAM [Concomitant]
     Dosage: 4.5MG/DAY
     Route: 065
     Dates: start: 20101001

REACTIONS (5)
  - DRUG THERAPY CHANGED [None]
  - DRUG INTERACTION [None]
  - DRUG LEVEL DECREASED [None]
  - CONDITION AGGRAVATED [None]
  - THERAPEUTIC RESPONSE UNEXPECTED [None]
